FAERS Safety Report 6234782-3 (Version None)
Quarter: 2009Q2

REPORT INFORMATION
  Report Type: 
  Country: None (occurrence: None)
  Receive Date: 20090618
  Receipt Date: 20090610
  Transmission Date: 20091009
  Serious: Yes (Death, Life-Threatening, Hospitalization)
  Sender: FDA-Public Use
  Company Number: PHHY2009JP13603

PATIENT
  Sex: Male
  Weight: 61 kg

DRUGS (18)
  1. ZOLEDRONIC ACID [Suspect]
     Indication: METASTASES TO BONE
     Dosage: 4 MG, UNK
     Route: 042
     Dates: start: 20070425
  2. METHOTREXATE [Concomitant]
     Dosage: UNK
     Route: 042
     Dates: start: 20070328
  3. FLUOROURACIL [Concomitant]
     Dosage: UNK
     Route: 042
     Dates: start: 20070328
  4. HEPARIN [Concomitant]
     Dosage: UNK
     Dates: start: 20070326
  5. PACLITAXEL [Concomitant]
     Dosage: 80 MG/M2/WEEK
  6. PURSENNID [Concomitant]
     Indication: CONSTIPATION
     Dosage: 24 MG
     Route: 048
     Dates: start: 20070411, end: 20070427
  7. FRAGMIN [Concomitant]
     Indication: DISSEMINATED INTRAVASCULAR COAGULATION
     Dosage: 4500 IU
     Route: 042
     Dates: start: 20070326, end: 20070413
  8. DUROTEP [Concomitant]
     Indication: CANCER PAIN
     Dosage: 7.5 MG
     Dates: start: 20070326, end: 20070601
  9. ZOFRAN [Concomitant]
     Indication: PROPHYLAXIS OF NAUSEA AND VOMITING
     Dosage: 4 MG
     Route: 042
     Dates: start: 20070328, end: 20070606
  10. DECADRON [Concomitant]
     Dosage: 8 MG
     Route: 042
     Dates: start: 20070328, end: 20070606
  11. DIAMOX [Concomitant]
     Dosage: 500 MG
     Route: 042
     Dates: start: 20070328, end: 20070606
  12. MEYLON [Concomitant]
     Dosage: 40 ML
     Route: 042
  13. LEUCOVORIN CALCIUM [Concomitant]
     Dosage: 45 GM
     Route: 048
     Dates: start: 20070329, end: 20070608
  14. MAALOX [Concomitant]
     Dosage: 3.6 G
     Route: 048
  15. OMEPRAL [Concomitant]
     Indication: GASTRITIS HAEMORRHAGIC
     Dosage: 30 MG
     Route: 048
     Dates: start: 20070410
  16. PRIMPERAN [Concomitant]
     Dosage: 2 ML
     Route: 042
     Dates: start: 20070327, end: 20070417
  17. SERENACE [Concomitant]
     Indication: INSOMNIA
     Dosage: 5 MG
     Route: 042
     Dates: start: 20070411
  18. LENDORMIN [Concomitant]
     Indication: INSOMNIA
     Dosage: 0.25 MG
     Route: 048
     Dates: start: 20070411

REACTIONS (11)
  - ANOREXIA [None]
  - BACK PAIN [None]
  - BLOOD CALCITONIN INCREASED [None]
  - BLOOD PARATHYROID HORMONE INCREASED [None]
  - DISSEMINATED INTRAVASCULAR COAGULATION [None]
  - ELECTROCARDIOGRAM QT PROLONGED [None]
  - FATIGUE [None]
  - GASTRIC CANCER [None]
  - GENERAL PHYSICAL HEALTH DETERIORATION [None]
  - HYPOCALCAEMIA [None]
  - MALAISE [None]
